FAERS Safety Report 17818734 (Version 3)
Quarter: 2020Q2

REPORT INFORMATION
  Report Type: Spontaneous
  Country: US (occurrence: US)
  Receive Date: 20200522
  Receipt Date: 20200622
  Transmission Date: 20200714
  Serious: No
  Sender: FDA-Public Use
  Company Number: US-STRONGBRIDGE BIOPHARMA-2020-STR-000120

PATIENT
  Age: 14 Year
  Sex: Male

DRUGS (2)
  1. KEVEYIS [Suspect]
     Active Substance: DICHLORPHENAMIDE
     Dosage: 50 MG, BID
     Route: 048
  2. KEVEYIS [Suspect]
     Active Substance: DICHLORPHENAMIDE
     Indication: FAMILIAL PERIODIC PARALYSIS
     Dosage: 25 MG, BID
     Route: 048
     Dates: start: 20200512

REACTIONS (8)
  - Wrong technique in product usage process [Recovering/Resolving]
  - Dysgeusia [Unknown]
  - Treatment noncompliance [Recovering/Resolving]
  - Feeling abnormal [Unknown]
  - Memory impairment [Unknown]
  - Memory impairment [Not Recovered/Not Resolved]
  - Anger [Unknown]
  - Affect lability [Unknown]

NARRATIVE: CASE EVENT DATE: 20200511
